FAERS Safety Report 25175530 (Version 1)
Quarter: 2025Q2

REPORT INFORMATION
  Report Type: Report from Study
  Country: DE (occurrence: DE)
  Receive Date: 20250408
  Receipt Date: 20250408
  Transmission Date: 20250716
  Serious: Yes (Hospitalization)
  Sender: ABBVIE
  Company Number: DE-ABBVIE-6212284

PATIENT
  Age: 66 Year
  Sex: Female
  Weight: 94 kg

DRUGS (1)
  1. SKYRIZI [Suspect]
     Active Substance: RISANKIZUMAB-RZAA
     Indication: Psoriasis
     Route: 058
     Dates: start: 20210607

REACTIONS (9)
  - Incisional hernia [Recovered/Resolved]
  - Obesity [Unknown]
  - Gastric mucosa erythema [Unknown]
  - Lipase increased [Unknown]
  - Pancreatitis chronic [Unknown]
  - Chronic gastritis [Unknown]
  - Gastritis [Unknown]
  - Atrioventricular block [Unknown]
  - Ventricular extrasystoles [Unknown]

NARRATIVE: CASE EVENT DATE: 20220501
